FAERS Safety Report 18055828 (Version 1)
Quarter: 2020Q3

REPORT INFORMATION
  Report Type: Spontaneous
  Country: CN (occurrence: CN)
  Receive Date: 20200722
  Receipt Date: 20200722
  Transmission Date: 20201103
  Serious: Yes (Other)
  Sender: FDA-Public Use
  Company Number: CN-PFIZER INC-2020272390

PATIENT
  Age: 28 Year
  Sex: Male

DRUGS (6)
  1. TYGACIL [Concomitant]
     Active Substance: TIGECYCLINE
     Indication: CENTRAL NERVOUS SYSTEM INFECTION
     Dosage: 100 MG, 2X/DAY (Q12H)
     Route: 042
  2. CEFOTAXIME/SULBACTAM [Concomitant]
     Indication: CENTRAL NERVOUS SYSTEM INFECTION
     Dosage: 3000 MG, 2X/DAY
  3. MERREM [Concomitant]
     Active Substance: MEROPENEM
     Indication: EVIDENCE BASED TREATMENT
     Dosage: 2000 MG, 3X/DAY (Q8H)
  4. ZYVOX [Concomitant]
     Active Substance: LINEZOLID
     Indication: EVIDENCE BASED TREATMENT
     Dosage: 600 MG, 2X/DAY (Q12H)
     Route: 042
  5. TIGECYCLINE. [Suspect]
     Active Substance: TIGECYCLINE
     Indication: ACINETOBACTER INFECTION
  6. TIGECYCLINE. [Suspect]
     Active Substance: TIGECYCLINE
     Indication: CENTRAL NERVOUS SYSTEM INFECTION
     Dosage: UNK (FIVE MILLIGRAMS OF TIGECYCLINE WERE DILUTED IN SALINE TO A TOTAL VOLUME OF 5 ML)
     Route: 037

REACTIONS (4)
  - Product use issue [Unknown]
  - Arachnoiditis [Recovered/Resolved]
  - Off label use [Unknown]
  - Product use in unapproved indication [Unknown]
